FAERS Safety Report 22637497 (Version 1)
Quarter: 2023Q2

REPORT INFORMATION
  Report Type: Spontaneous
  Country: US (occurrence: US)
  Receive Date: 20230626
  Receipt Date: 20230626
  Transmission Date: 20230722
  Serious: No
  Sender: FDA-Public Use
  Company Number: US-BAYER-2023A084226

PATIENT
  Sex: Female

DRUGS (2)
  1. CLARITIN [Suspect]
     Active Substance: LORATADINE
     Indication: Seasonal allergy
     Dosage: UNK
  2. PFIZER-BIONTECH COVID-19 VACCINE [Suspect]
     Active Substance: TOZINAMERAN

REACTIONS (5)
  - Musculoskeletal stiffness [Not Recovered/Not Resolved]
  - Neck pain [Not Recovered/Not Resolved]
  - Headache [Not Recovered/Not Resolved]
  - Gait disturbance [Not Recovered/Not Resolved]
  - Muscular dystrophy [Not Recovered/Not Resolved]
